FAERS Safety Report 6687179-6 (Version None)
Quarter: 2010Q2

REPORT INFORMATION
  Report Type: 
  Country: None (occurrence: None)
  Receive Date: 20100416
  Receipt Date: 20100416
  Transmission Date: 20101027
  Serious: No
  Sender: FDA-Public Use
  Company Number: None

PATIENT
  Age: 64 Year
  Sex: Female

DRUGS (1)
  1. ISONIAZID [Suspect]
     Dosage: 300 MG
     Dates: start: 20100408

REACTIONS (1)
  - LIVER FUNCTION TEST ABNORMAL [None]
